FAERS Safety Report 15716709 (Version 1)
Quarter: 2018Q4

REPORT INFORMATION
  Report Type: Spontaneous
  Country: NL (occurrence: NL)
  Receive Date: 20181213
  Receipt Date: 20181213
  Transmission Date: 20190205
  Serious: Yes (Other)
  Sender: FDA-Public Use
  Company Number: NL-AUROBINDO-AUR-APL-2018-059532

PATIENT
  Sex: Female

DRUGS (1)
  1. OXYCODON HCL 10 MG, CAPSULES HARD [Suspect]
     Active Substance: OXYCODONE HYDROCHLORIDE
     Indication: PRODUCT USED FOR UNKNOWN INDICATION
     Dosage: 4D2C
     Route: 048
     Dates: start: 2015

REACTIONS (1)
  - Drug dependence [Not Recovered/Not Resolved]
